FAERS Safety Report 7983130-7 (Version None)
Quarter: 2011Q4

REPORT INFORMATION
  Report Type: 
  Country: None (occurrence: None)
  Receive Date: 20111215
  Receipt Date: 20111202
  Transmission Date: 20120403
  Serious: Yes (Death)
  Sender: FDA-Public Use
  Company Number: IT-MYLANLABS-2011S1025164

PATIENT
  Age: 76 Year
  Sex: Male

DRUGS (5)
  1. GEMCITABINE [Suspect]
     Indication: LUNG ADENOCARCINOMA
     Dosage: INFUSION; RECEIVED SIX CYCLES
     Route: 065
  2. ASPIRIN [Concomitant]
     Route: 065
  3. LANSOPRAZOLE [Concomitant]
     Route: 065
  4. PYRIDOSTIGMINE BROMIDE [Concomitant]
     Route: 065
  5. CARBOPLATIN [Suspect]
     Indication: LUNG ADENOCARCINOMA
     Dosage: INFUSION; RECEIVED SIX CYCLES
     Route: 065

REACTIONS (2)
  - PROGRESSIVE MULTIFOCAL LEUKOENCEPHALOPATHY [None]
  - LEUKOPENIA [None]
